FAERS Safety Report 4877315-6 (Version None)
Quarter: 2006Q1

REPORT INFORMATION
  Report Type: 
  Country: None (occurrence: None)
  Receive Date: 20060109
  Receipt Date: 20051225
  Transmission Date: 20060701
  Serious: Yes (Other)
  Sender: FDA-Public Use
  Company Number: 200601IM000002

PATIENT
  Sex: Female

DRUGS (1)
  1. INFERAX (INTERFERON ALFACON-1) [Suspect]
     Indication: HEPATITIS C
     Dosage: 18 UG, TIW, SUBCUTANEOUS
     Route: 058
     Dates: start: 20050901, end: 20051214

REACTIONS (4)
  - CEREBROVASCULAR ACCIDENT [None]
  - HAEMOGLOBIN DECREASED [None]
  - PLATELET COUNT DECREASED [None]
  - WHITE BLOOD CELL COUNT DECREASED [None]
